FAERS Safety Report 12114649 (Version 2)
Quarter: 2016Q1

REPORT INFORMATION
  Report Type: Spontaneous
  Country: US (occurrence: US)
  Receive Date: 20160225
  Receipt Date: 20160331
  Transmission Date: 20160526
  Serious: Yes (Other)
  Sender: FDA-Public Use
  Company Number: US-BAUSCH-BL-2016-004492

PATIENT
  Age: 8 Decade
  Sex: Female

DRUGS (6)
  1. TRIAMCINOLONE [Suspect]
     Active Substance: TRIAMCINOLONE
     Indication: HEADACHE
  2. TRIAMCINOLONE [Suspect]
     Active Substance: TRIAMCINOLONE
     Indication: NECK PAIN
  3. DEXAMETHASONE. [Suspect]
     Active Substance: DEXAMETHASONE
     Indication: NECK PAIN
     Route: 008
  4. DEXAMETHASONE. [Suspect]
     Active Substance: DEXAMETHASONE
     Indication: HEADACHE
  5. DEHYDROEPIANDROSTERONE [Concomitant]
     Active Substance: PRASTERONE
     Indication: HEADACHE
  6. HYDROCORTISONE. [Suspect]
     Active Substance: HYDROCORTISONE
     Indication: PRODUCT USED FOR UNKNOWN INDICATION
     Dosage: 60 MG IN THE MORNING AND 40 MG IN THE EVENING
     Route: 048

REACTIONS (6)
  - Swelling face [Recovered/Resolved]
  - Agitation [Recovered/Resolved]
  - Weight increased [Recovered/Resolved]
  - Hypothalamic pituitary adrenal axis suppression [Recovered/Resolved]
  - Insomnia [Recovered/Resolved]
  - Cushingoid [Recovered/Resolved]
